FAERS Safety Report 16067050 (Version 3)
Quarter: 2019Q3

REPORT INFORMATION
  Report Type: Spontaneous
  Country: US (occurrence: US)
  Receive Date: 20190313
  Receipt Date: 20190702
  Transmission Date: 20191004
  Serious: No
  Sender: FDA-Public Use
  Company Number: US-TAKEDA-2019TUS012014

PATIENT
  Sex: Female
  Weight: 97 kg

DRUGS (2)
  1. REVLIMID [Concomitant]
     Active Substance: LENALIDOMIDE
     Dosage: UNK
     Dates: start: 20190411
  2. NINLARO [Suspect]
     Active Substance: IXAZOMIB CITRATE
     Indication: PLASMA CELL MYELOMA
     Dosage: 4 MILLIGRAM
     Route: 048
     Dates: start: 20190214, end: 201906

REACTIONS (8)
  - Productive cough [Unknown]
  - Fatigue [Unknown]
  - Incorrect dosage administered [Unknown]
  - Taste disorder [Unknown]
  - Tremor [Unknown]
  - Sinus disorder [Unknown]
  - Skin discolouration [Unknown]
  - Hypoaesthesia [Unknown]
